FAERS Safety Report 4461861-3 (Version None)
Quarter: 2004Q3

REPORT INFORMATION
  Report Type: 
  Country: None (occurrence: None)
  Receive Date: 20040923
  Receipt Date: 20040915
  Transmission Date: 20050211
  Serious: Yes (Other)
  Sender: FDA-Public Use
  Company Number: 2004233806ES

PATIENT
  Age: 75 Year
  Sex: Male

DRUGS (3)
  1. LINEZOLID (LINEZOLID) TABLET [Suspect]
     Indication: STAPHYLOCOCCAL INFECTION
     Dosage: 600 MG, BID,ORAL
     Route: 048
     Dates: start: 20030301, end: 20030601
  2. AMOXI-CLAVULANICO (CLAVULANIC ACID) [Concomitant]
  3. LEVOFLOXACIN [Concomitant]

REACTIONS (2)
  - ANAEMIA MEGALOBLASTIC [None]
  - PERIPHERAL SENSORIMOTOR NEUROPATHY [None]
